FAERS Safety Report 23103739 (Version 1)
Quarter: 2023Q4

REPORT INFORMATION
  Report Type: Spontaneous
  Country: US (occurrence: US)
  Receive Date: 20231025
  Receipt Date: 20231025
  Transmission Date: 20240109
  Serious: No
  Sender: FDA-Public Use
  Company Number: US-PFIZER INC-202300336336

PATIENT
  Sex: Female

DRUGS (1)
  1. PAXLOVID [Suspect]
     Active Substance: NIRMATRELVIR\RITONAVIR
     Dosage: UNK
     Dates: start: 20231019, end: 20231019

REACTIONS (4)
  - Lip swelling [Unknown]
  - Oral discomfort [Unknown]
  - Eye swelling [Unknown]
  - Panic reaction [Unknown]

NARRATIVE: CASE EVENT DATE: 20231019
